FAERS Safety Report 18346381 (Version 3)
Quarter: 2020Q4

REPORT INFORMATION
  Report Type: Report from Study
  Country: ES (occurrence: ES)
  Receive Date: 20201005
  Receipt Date: 20201014
  Transmission Date: 20210114
  Serious: Yes (Hospitalization)
  Sender: FDA-Public Use
  Company Number: ES-JNJFOC-20200941821

PATIENT
  Age: 57 Year
  Sex: Male
  Weight: 82 kg

DRUGS (3)
  1. TREMFYA [Suspect]
     Active Substance: GUSELKUMAB
     Indication: PSORIASIS
     Route: 065
     Dates: start: 20190827
  2. TREMFYA [Suspect]
     Active Substance: GUSELKUMAB
  3. TREMFYA [Suspect]
     Active Substance: GUSELKUMAB

REACTIONS (1)
  - Pneumonia influenzal [Recovered/Resolved]

NARRATIVE: CASE EVENT DATE: 20200218
